FAERS Safety Report 9580859 (Version 1)
Quarter: 2013Q4

REPORT INFORMATION
  Report Type: Spontaneous
  Country: US (occurrence: US)
  Receive Date: 20131002
  Receipt Date: 20131002
  Transmission Date: 20140711
  Serious: No
  Sender: FDA-Public Use
  Company Number: US-009507513-1309USA012831

PATIENT
  Sex: Female

DRUGS (4)
  1. SINGULAIR [Suspect]
     Indication: ASTHMA
     Dosage: UNK
     Route: 048
     Dates: start: 20120507
  2. MONTELUKAST SODIUM [Suspect]
     Route: 048
  3. PRIMIDONE [Concomitant]
  4. TEGRETOL [Concomitant]

REACTIONS (2)
  - Erythema [Unknown]
  - Drug administration error [Unknown]
